FAERS Safety Report 24650595 (Version 1)
Quarter: 2024Q4

REPORT INFORMATION
  Report Type: Spontaneous
  Country: US (occurrence: US)
  Receive Date: 20241122
  Receipt Date: 20241122
  Transmission Date: 20250115
  Serious: No
  Sender: ALVOGEN
  Company Number: US-ALVOGEN-2024092936

PATIENT
  Sex: Male

DRUGS (2)
  1. TERIPARATIDE [Suspect]
     Active Substance: TERIPARATIDE
     Indication: Osteoporosis
     Dosage: STRENGTH: 250 MCG/ML, DAILY?ONGOING
     Route: 058
     Dates: start: 202312
  2. Prasco [Concomitant]
     Indication: Osteoporosis
     Dosage: TERIPARATIDE PEN (PRASCO), FORTEO DELIVERY DEVICE

REACTIONS (1)
  - Arthralgia [Unknown]
